FAERS Safety Report 4822539-7 (Version None)
Quarter: 2005Q4

REPORT INFORMATION
  Report Type: 
  Country: None (occurrence: None)
  Receive Date: 20051108
  Receipt Date: 20050221
  Transmission Date: 20060501
  Serious: Yes (Life-Threatening)
  Sender: FDA-Public Use
  Company Number: 200510443EU

PATIENT
  Age: 48 Year
  Sex: Female

DRUGS (5)
  1. RILUZOLE [Suspect]
     Indication: HUNTINGTON'S CHOREA
     Route: 048
     Dates: start: 20001109, end: 20041216
  2. RILUZOLE [Suspect]
     Route: 048
     Dates: start: 20041201
  3. L-THYROXIN [Suspect]
     Route: 048
     Dates: start: 19980101
  4. TIAPRID [Concomitant]
     Indication: HYPERKINESIA
     Route: 048
     Dates: start: 20050101
  5. ZOPICLONE [Concomitant]
     Indication: SLEEP DISORDER
     Route: 048
     Dates: start: 20050101

REACTIONS (2)
  - LOSS OF CONSCIOUSNESS [None]
  - VENTRICULAR FIBRILLATION [None]
